FAERS Safety Report 5479792-9 (Version None)
Quarter: 2007Q4

REPORT INFORMATION
  Report Type: 
  Country: None (occurrence: None)
  Receive Date: 20071008
  Receipt Date: 20070925
  Transmission Date: 20080405
  Serious: Yes (Hospitalization)
  Sender: FDA-Public Use
  Company Number: US-SHR-US-2007-026608

PATIENT
  Age: 54 Year
  Sex: Male
  Weight: 97.5 kg

DRUGS (4)
  1. BETASERON [Suspect]
     Indication: MULTIPLE SCLEROSIS
     Dosage: 8 MIU, EVERY 2D
     Route: 058
     Dates: start: 20050716, end: 20070701
  2. LISINOPRIL [Concomitant]
  3. DETROL [Concomitant]
  4. TYSABRI [Suspect]
     Route: 042

REACTIONS (8)
  - ABASIA [None]
  - CELLULITIS [None]
  - CONTUSION [None]
  - HYPERTENSION [None]
  - HYPERTONIC BLADDER [None]
  - INJECTION SITE PAIN [None]
  - JOINT RANGE OF MOTION DECREASED [None]
  - WRONG TECHNIQUE IN DRUG USAGE PROCESS [None]
